FAERS Safety Report 5513939-0 (Version None)
Quarter: 2007Q4

REPORT INFORMATION
  Report Type: 
  Country: None (occurrence: None)
  Receive Date: 20071113
  Receipt Date: 20071105
  Transmission Date: 20080405
  Serious: Yes (Death)
  Sender: FDA-Public Use
  Company Number: FR-BRISTOL-MYERS SQUIBB COMPANY-13978663

PATIENT
  Age: 24 Year
  Sex: Male

DRUGS (8)
  1. BLEOMYCIN SULFATE [Suspect]
     Indication: TESTIS CANCER
     Route: 042
     Dates: start: 20071001, end: 20071001
  2. CISPLATIN [Suspect]
     Indication: TESTIS CANCER
     Route: 042
     Dates: start: 20071001, end: 20071005
  3. ETOPOSIDE [Suspect]
     Indication: TESTIS CANCER
     Route: 042
     Dates: start: 20071001, end: 20071005
  4. PLITICAN [Suspect]
     Route: 042
     Dates: start: 20071001, end: 20071005
  5. ZOPHREN [Suspect]
     Indication: PROPHYLAXIS
     Route: 042
     Dates: start: 20071001, end: 20071005
  6. SOLU-MEDROL [Suspect]
     Indication: PROPHYLAXIS
     Route: 042
     Dates: start: 20071001, end: 20071005
  7. HYDROCORTISONE SODIUM SUCCINATE [Suspect]
     Indication: PROPHYLAXIS
     Dates: start: 20071001, end: 20071005
  8. EMEND [Suspect]
     Route: 048
     Dates: start: 20071001, end: 20071003

REACTIONS (1)
  - CARDIAC ARREST [None]
